FAERS Safety Report 9702101 (Version 1)
Quarter: 2013Q4

REPORT INFORMATION
  Report Type: Spontaneous
  Country: US (occurrence: None)
  Receive Date: 20131120
  Receipt Date: 20131120
  Transmission Date: 20140711
  Serious: Yes (Other)
  Sender: FDA-Public Use
  Company Number: 2013-US-003077

PATIENT
  Age: 41 Year
  Sex: Female
  Weight: 39 kg

DRUGS (3)
  1. FAZACLO ODT (CLOZAPINE) TABLET, 100MG [Suspect]
     Indication: SCHIZOPHRENIA, PARANOID TYPE
     Route: 048
     Dates: start: 20060717
  2. HALDOL DECANOATE (HALOPERIDOL DECANOATE) [Concomitant]
  3. LATUDA (LURASIDONE HYDROCHLORIDE) [Concomitant]

REACTIONS (12)
  - Retinal degeneration [None]
  - Retinal detachment [None]
  - Food aversion [None]
  - Dysphagia [None]
  - Weight decreased [None]
  - Gastrooesophageal reflux disease [None]
  - Treatment noncompliance [None]
  - Pharyngitis [None]
  - Obsessive-compulsive disorder [None]
  - Spasmodic dysphonia [None]
  - Paraesthesia [None]
  - Reaction to food additive [None]
